FAERS Safety Report 5202343-0 (Version None)
Quarter: 2006Q4

REPORT INFORMATION
  Report Type: 
  Country: None (occurrence: None)
  Receive Date: 20061012
  Receipt Date: 20060719
  Transmission Date: 20070319
  Serious: Yes (Hospitalization, Other)
  Sender: FDA-Public Use
  Company Number: 2006S1000112

PATIENT
  Age: 81 Year
  Sex: Female
  Weight: 63.6 kg

DRUGS (13)
  1. CUBICIN [Suspect]
     Indication: SKIN INFECTION
     Dosage: 250 MG; Q24H; IV
     Route: 042
     Dates: start: 20060503, end: 20060507
  2. CUBICIN [Suspect]
     Indication: SOFT TISSUE INFECTION
     Dosage: 250 MG; Q24H; IV
     Route: 042
     Dates: start: 20060503, end: 20060507
  3. PANTOPRAZOLE SODIUM [Concomitant]
  4. AVAPRO [Concomitant]
  5. EFFEXOR [Concomitant]
  6. ALLEGRA [Concomitant]
  7. ASPIRIN [Concomitant]
  8. LOVENOX [Concomitant]
  9. K-DUR 10 [Concomitant]
  10. ZOSYN [Concomitant]
  11. LASIX [Concomitant]
  12. OS-CAL D [Concomitant]
  13. AMARYL [Concomitant]

REACTIONS (1)
  - RHABDOMYOLYSIS [None]
